FAERS Safety Report 20865076 (Version 1)
Quarter: 2022Q2

REPORT INFORMATION
  Report Type: Spontaneous
  Country: US (occurrence: US)
  Receive Date: 20220524
  Receipt Date: 20220524
  Transmission Date: 20220721
  Serious: No
  Sender: FDA-Public Use
  Company Number: US-BRISTOL-MYERS SQUIBB COMPANY-2022-029938

PATIENT
  Age: 85 Year
  Sex: Male

DRUGS (2)
  1. ELIQUIS [Suspect]
     Active Substance: APIXABAN
     Indication: Heart rate irregular
     Route: 048
     Dates: start: 202201, end: 202204
  2. ELIQUIS [Suspect]
     Active Substance: APIXABAN
     Dosage: SPLITTING THE 5 MG TABLET IN HALF
     Route: 048
     Dates: start: 202204

REACTIONS (3)
  - Blood creatinine increased [Unknown]
  - Intentional product use issue [Unknown]
  - Treatment noncompliance [Unknown]

NARRATIVE: CASE EVENT DATE: 20220101
